FAERS Safety Report 6408211-0 (Version None)
Quarter: 2009Q4

REPORT INFORMATION
  Report Type: 
  Country: None (occurrence: None)
  Receive Date: 20091016
  Receipt Date: 20091009
  Transmission Date: 20100525
  Serious: Yes (Hospitalization)
  Sender: FDA-Public Use
  Company Number: FR-EBEWE-1522PACLI09

PATIENT
  Age: 79 Year
  Sex: Male

DRUGS (2)
  1. PACLITAXEL [Suspect]
     Indication: ANGIOSARCOMA
     Dosage: 300 MG, INJECTION
     Dates: start: 20090402, end: 20090402
  2. LEVEMIR [Concomitant]

REACTIONS (1)
  - TRANSIENT ISCHAEMIC ATTACK [None]
